FAERS Safety Report 4941723-5 (Version None)
Quarter: 2006Q1

REPORT INFORMATION
  Report Type: 
  Country: None (occurrence: None)
  Receive Date: 20060308
  Receipt Date: 20060224
  Transmission Date: 20060701
  Serious: Yes (Hospitalization, Other)
  Sender: FDA-Public Use
  Company Number: 2006028664

PATIENT
  Sex: Male
  Weight: 74.8435 kg

DRUGS (2)
  1. LIPITOR [Suspect]
     Indication: BLOOD CHOLESTEROL INCREASED
     Dosage: 20 MG (20 MG, 1 IN 1 D), ORAL
     Route: 048
     Dates: start: 20030101
  2. TIMOPTIC [Concomitant]

REACTIONS (4)
  - CHEST PAIN [None]
  - CORONARY ARTERY DISEASE [None]
  - POST PROCEDURAL COMPLICATION [None]
  - SILENT MYOCARDIAL INFARCTION [None]
